FAERS Safety Report 8707948 (Version 3)
Quarter: 2012Q4

REPORT INFORMATION
  Report Type: Spontaneous
  Country: CN (occurrence: None)
  Receive Date: 20120718
  Receipt Date: 20120905
  Transmission Date: 20130627
  Serious: Yes (Death, Hospitalization, Other)
  Sender: FDA-Public Use
  Company Number: 2012P1047460

PATIENT
  Age: 62 Year
  Sex: Male

DRUGS (7)
  1. CEFUROXIME SODIUM [Suspect]
     Indication: PROPHYLAXIS
     Route: 042
     Dates: start: 20120526, end: 20120528
  2. CEFUROXIME SODIUM [Suspect]
     Indication: POSTOPERATIVE CARE
     Route: 042
     Dates: start: 20120526, end: 20120528
  3. BATROXOBIN [Concomitant]
  4. NEOSTIGMINE METHYLSULPHATE [Concomitant]
  5. RANITIDINE HYDROCHLORIDE [Concomitant]
  6. COMPOUND AMINO ACID 18AA [Concomitant]
  7. METRONIDAZOLE [Concomitant]

REACTIONS (5)
  - Rash erythematous [None]
  - Dermatitis exfoliative [None]
  - Ulcerative keratitis [None]
  - Fungal infection [None]
  - Lung infection [None]
